FAERS Safety Report 4692769-6 (Version None)
Quarter: 2005Q2

REPORT INFORMATION
  Report Type: 
  Country: None (occurrence: None)
  Receive Date: 20050617
  Receipt Date: 20050526
  Transmission Date: 20051028
  Serious: Yes (Hospitalization)
  Sender: FDA-Public Use
  Company Number: PHEH2005US06143

PATIENT
  Age: 79 Year
  Sex: Male

DRUGS (20)
  1. ZOMETA [Suspect]
     Indication: PROSTATE CANCER
     Dosage: 4 MG EVERY MONTH
     Route: 042
     Dates: start: 20041028, end: 20050510
  2. TRAZODONE [Concomitant]
     Dosage: 50MG HS
  3. SIMVASTATIN [Concomitant]
     Dosage: 20MG HS
  4. FOLIC ACID [Concomitant]
     Dosage: 1MG QD
  5. OMEPRAZOLE [Concomitant]
     Dosage: 20MG HS
  6. ATENOLOL [Concomitant]
     Dosage: 50MG BID
  7. GLYBURIDE AND METFORMIN HCL [Concomitant]
     Dosage: 10/1000 BID
  8. ASPIRIN [Concomitant]
     Dosage: 81MG QD
  9. VITAMIN B6 [Concomitant]
     Dosage: 1000 QD
  10. ACTOS /USA/ [Concomitant]
     Dosage: 30MG QD
  11. ZETIA [Concomitant]
     Dosage: 10MG QD
  12. LUPRON [Concomitant]
     Dosage: 4 TIMES/YEAR
  13. NITROGLYCERIN ^DAK^ [Concomitant]
     Dosage: 0.5INCH Q6H
  14. AMLODIPINE [Concomitant]
     Dosage: 5MG QD
  15. BISACODYL [Concomitant]
     Dosage: 10MG QD
  16. MIRALAX [Concomitant]
     Dosage: 17 GM QD
  17. LORAZEPAM [Concomitant]
     Dosage: 0.5MG QHS PRN
     Route: 042
  18. DETROL [Concomitant]
  19. FLOMAX [Concomitant]
  20. TERAZOSIN [Concomitant]
     Dosage: 10MG QD

REACTIONS (28)
  - ABDOMINAL DISCOMFORT [None]
  - ANURIA [None]
  - AZOTAEMIA [None]
  - BLADDER CATHETERISATION [None]
  - BLADDER DISORDER [None]
  - BLADDER SPASM [None]
  - BLOOD CREATININE INCREASED [None]
  - BLOOD GLUCOSE DECREASED [None]
  - CHILLS [None]
  - CHROMATURIA [None]
  - CONFUSIONAL STATE [None]
  - DIALYSIS [None]
  - DYSPNOEA [None]
  - DYSURIA [None]
  - HYDRONEPHROSIS [None]
  - HYPOGLYCAEMIA [None]
  - LYMPHADENOPATHY [None]
  - MICTURITION URGENCY [None]
  - NEPHROSTOMY TUBE PLACEMENT [None]
  - OEDEMA [None]
  - PELVIC PAIN [None]
  - PENILE PAIN [None]
  - POLLAKIURIA [None]
  - PYREXIA [None]
  - RENAL FAILURE [None]
  - RENAL TUBULAR NECROSIS [None]
  - RETROPERITONEAL FIBROSIS [None]
  - URINARY CASTS [None]
